FAERS Safety Report 7530193-9 (Version None)
Quarter: 2011Q2

REPORT INFORMATION
  Report Type: 
  Country: None (occurrence: None)
  Receive Date: 20110606
  Receipt Date: 20110606
  Transmission Date: 20111010
  Serious: Yes (Other)
  Sender: FDA-Public Use
  Company Number: None

PATIENT
  Sex: Male

DRUGS (4)
  1. AMARYL [Concomitant]
  2. ACETAMINOPHEN [Concomitant]
  3. DORZOLAMIDE [Suspect]
     Indication: GLAUCOMA
     Dosage: 1 DROP BID LEFT EYE
     Route: 047
     Dates: start: 20110301
  4. WARFARIN SODIUM [Concomitant]

REACTIONS (14)
  - ASTHENIA [None]
  - GINGIVAL HYPERTROPHY [None]
  - SWOLLEN TONGUE [None]
  - HEART RATE INCREASED [None]
  - DYSPNOEA EXERTIONAL [None]
  - DIZZINESS [None]
  - OROPHARYNGEAL PAIN [None]
  - MYALGIA [None]
  - PHOTOPHOBIA [None]
  - FATIGUE [None]
  - DRY THROAT [None]
  - BACK PAIN [None]
  - HEADACHE [None]
  - EAR PAIN [None]
